FAERS Safety Report 21521784 (Version 1)
Quarter: 2022Q4

REPORT INFORMATION
  Report Type: Spontaneous
  Country: GB (occurrence: GB)
  Receive Date: 20221028
  Receipt Date: 20221028
  Transmission Date: 20230112
  Serious: Yes (Hospitalization)
  Sender: FDA-Public Use
  Company Number: None

PATIENT
  Sex: Female

DRUGS (9)
  1. CITALOPRAM HYDROBROMIDE [Suspect]
     Active Substance: CITALOPRAM HYDROBROMIDE
     Indication: Product used for unknown indication
     Dosage: 10MG TABLETS 1 OM
  2. AMLODIPINE [Concomitant]
     Active Substance: AMLODIPINE BESYLATE
     Indication: Product used for unknown indication
     Dosage: 10MG TABLETS 1 OM
  3. CHOLECALCIFEROL [Concomitant]
     Active Substance: CHOLECALCIFEROL
     Indication: Product used for unknown indication
  4. DOCUSATE [Concomitant]
     Active Substance: DOCUSATE
     Indication: Product used for unknown indication
     Dosage: 100MG CAPSULES TAKE TWO CAPSULES TWICE A DAY WHEN REQUIRED
  5. ALBUTEROL [Concomitant]
     Active Substance: ALBUTEROL
     Indication: Product used for unknown indication
     Dosage: 100MICROGRAMS/DOSE INHALER CFC FREE 2 PUFFS 3-4 TIMES A DAY IF REQUIRED
  6. SENNA [Concomitant]
     Active Substance: SENNA LEAF\SENNOSIDES\SENNOSIDES A AND B
     Indication: Product used for unknown indication
     Dosage: 7.5MG TABLETS TWO TO BE TAKEN AT NIGHT
  7. CALCIUM CARBONATE\CHOLECALCIFEROL [Concomitant]
     Active Substance: CALCIUM CARBONATE\CHOLECALCIFEROL
     Indication: Product used for unknown indication
     Dosage: COLECALCIFEROL 400UNIT / CALCIUM CARBONATE 1.5G CHEWABLE TABLETS TAKE ONE CHEWABLE TABLET TWICE DAIL
  8. TIOTROPIUM BROMIDE [Concomitant]
     Active Substance: TIOTROPIUM BROMIDE
     Indication: Product used for unknown indication
     Dosage: BRALTUS 10MICROGRAM INHALATION POWDER CAPSULES WITH ZONDA INHALER INHALE 1 PUFF OM WITH ZONDA DEVIC
  9. FLUTICASONE FUROATE\VILANTEROL TRIFENATATE [Concomitant]
     Active Substance: FLUTICASONE FUROATE\VILANTEROL TRIFENATATE
     Indication: Product used for unknown indication
     Dosage: 92MICROGRAMS/DOSE / 22MICROGRAMS/DOSE DRY POWDER INHALER 1 PUFF OM

REACTIONS (1)
  - Femur fracture [Unknown]
